FAERS Safety Report 25635538 (Version 1)
Quarter: 2025Q3

REPORT INFORMATION
  Report Type: Spontaneous
  Country: US (occurrence: US)
  Receive Date: 20250802
  Receipt Date: 20250802
  Transmission Date: 20251021
  Serious: No
  Sender: ELI LILLY AND COMPANY
  Company Number: US-ELI_LILLY_AND_COMPANY-US202507020677

PATIENT
  Sex: Female

DRUGS (2)
  1. MOUNJARO [Suspect]
     Active Substance: TIRZEPATIDE
     Indication: Product used for unknown indication
     Route: 058
     Dates: start: 202507
  2. CYANOCOBALAMIN;SEMAGLUTIDE [Concomitant]
     Indication: Product used for unknown indication
     Route: 065

REACTIONS (2)
  - Musculoskeletal discomfort [Unknown]
  - Abdominal discomfort [Unknown]
